FAERS Safety Report 9458572 (Version 1)
Quarter: 2013Q3

REPORT INFORMATION
  Report Type: Spontaneous
  Country: US (occurrence: None)
  Receive Date: 20130813
  Receipt Date: 20130813
  Transmission Date: 20140515
  Serious: Yes (Other)
  Sender: FDA-Public Use
  Company Number: None

PATIENT
  Age: 45 Year
  Sex: Male
  Weight: 117.94 kg

DRUGS (2)
  1. CYMBALTA [Suspect]
     Indication: BACK PAIN
     Dosage: 60 MG 1 PILL ONCE DAILY TAKEN BY MOUTH
     Route: 048
     Dates: start: 20130115, end: 20130615
  2. CYMBALTA [Suspect]
     Indication: ROAD TRAFFIC ACCIDENT
     Dosage: 60 MG 1 PILL ONCE DAILY TAKEN BY MOUTH
     Route: 048
     Dates: start: 20130115, end: 20130615

REACTIONS (6)
  - Suicidal ideation [None]
  - Crying [None]
  - Emotional disorder [None]
  - Tremor [None]
  - Muscle twitching [None]
  - Discomfort [None]
